FAERS Safety Report 6655639-X (Version None)
Quarter: 2010Q1

REPORT INFORMATION
  Report Type: 
  Country: None (occurrence: None)
  Receive Date: 20100326
  Receipt Date: 20100326
  Transmission Date: 20100710
  Serious: Yes (Hospitalization)
  Sender: FDA-Public Use
  Company Number: None

PATIENT
  Age: 33 Year
  Sex: Female
  Weight: 59 kg

DRUGS (1)
  1. VALPROIC ACID [Suspect]
     Indication: MIGRAINE
     Dosage: 250 MG BID PO
     Route: 048
     Dates: start: 20090610, end: 20090805

REACTIONS (1)
  - HEPATITIS ACUTE [None]
